FAERS Safety Report 7643630-6 (Version None)
Quarter: 2011Q3

REPORT INFORMATION
  Report Type: 
  Country: None (occurrence: None)
  Receive Date: 20110729
  Receipt Date: 20110720
  Transmission Date: 20111222
  Serious: Yes (Other)
  Sender: FDA-Public Use
  Company Number: PHHY2010US74747

PATIENT
  Sex: Female
  Weight: 77.551 kg

DRUGS (8)
  1. TRAMADOL HCL [Concomitant]
     Dosage: 50 MG, UNK
  2. ZOMETA [Suspect]
     Indication: BONE NEOPLASM MALIGNANT
     Dosage: 4 MG, UNK
     Route: 042
     Dates: start: 20101124
  3. NORCO [Concomitant]
     Dosage: 5 TO 325 MG, UNK
  4. CAPECITABINE [Concomitant]
     Dosage: 1500 MG, BID
     Dates: start: 20101220
  5. DARVOCET-N 50 [Concomitant]
     Dosage: UNK UKN, UNK
  6. ZITHROMAX [Concomitant]
     Dosage: 250 MG, UNK
  7. XELODA [Concomitant]
     Dosage: 500 / 3000 MG, A DAY
  8. GABAPENTIN [Concomitant]
     Dosage: 100 MG, UNK

REACTIONS (11)
  - CATARACT [None]
  - PAIN IN EXTREMITY [None]
  - CHEST DISCOMFORT [None]
  - DEPRESSION [None]
  - FATIGUE [None]
  - CHEST PAIN [None]
  - VISION BLURRED [None]
  - COUGH [None]
  - BONE PAIN [None]
  - CHILLS [None]
  - PLEURITIC PAIN [None]
